FAERS Safety Report 13996626 (Version 1)
Quarter: 2017Q3

REPORT INFORMATION
  Report Type: Spontaneous
  Country: US (occurrence: US)
  Receive Date: 20170921
  Receipt Date: 20170921
  Transmission Date: 20171128
  Serious: No
  Sender: FDA-Public Use
  Company Number: US-ALLERGAN-1723574US

PATIENT
  Sex: Female

DRUGS (4)
  1. CLONAZEPAM. [Concomitant]
     Active Substance: CLONAZEPAM
     Indication: INSOMNIA
     Dosage: 0.75 MG, QD
  2. VIBERZI [Suspect]
     Active Substance: ELUXADOLINE
     Dosage: 75 MG, QD
  3. VIBERZI [Suspect]
     Active Substance: ELUXADOLINE
     Indication: IRRITABLE BOWEL SYNDROME
     Dosage: 75 MG, BID
  4. VIBERZI [Suspect]
     Active Substance: ELUXADOLINE
     Dosage: 75 MG, QOD
     Dates: end: 20170609

REACTIONS (6)
  - Diarrhoea [Unknown]
  - Pain [Unknown]
  - Inappropriate schedule of drug administration [Unknown]
  - Nausea [Unknown]
  - Constipation [Unknown]
  - Muscle spasms [Unknown]
